FAERS Safety Report 16113068 (Version 1)
Quarter: 2019Q1

REPORT INFORMATION
  Report Type: Spontaneous
  Country: NO (occurrence: NO)
  Receive Date: 20190325
  Receipt Date: 20190325
  Transmission Date: 20190418
  Serious: Yes (Hospitalization)
  Sender: FDA-Public Use
  Company Number: NO-SILVERGATE PHARMACEUTICALS, INC.-2019SIL00013

PATIENT
  Age: 14 Year
  Sex: Male

DRUGS (2)
  1. METHOTREXATE. [Suspect]
     Active Substance: METHOTREXATE
     Dosage: 240 MG, ONCE
     Route: 037
  2. CYTARABINE. [Concomitant]
     Active Substance: CYTARABINE
     Indication: ACUTE LYMPHOCYTIC LEUKAEMIA
     Route: 037

REACTIONS (6)
  - Product preparation error [Recovered/Resolved]
  - Toxicity to various agents [Recovered/Resolved]
  - Memory impairment [Not Recovered/Not Resolved]
  - Arachnoiditis [Recovered/Resolved]
  - Subdural haematoma [Recovered/Resolved]
  - Accidental overdose [Recovered/Resolved]
